FAERS Safety Report 20199909 (Version 1)
Quarter: 2021Q4

REPORT INFORMATION
  Report Type: Spontaneous
  Country: US (occurrence: None)
  Receive Date: 20211217
  Receipt Date: 20211217
  Transmission Date: 20220304
  Serious: Yes (Hospitalization)
  Sender: FDA-Public Use
  Company Number: None

PATIENT
  Age: 88 Year
  Sex: Female
  Weight: 64.9 kg

DRUGS (1)
  1. REVLIMID [Suspect]
     Active Substance: LENALIDOMIDE
     Indication: Plasma cell myeloma
     Dosage: OTHER FREQUENCY : 21DAYS  7 DAYS OFF;?
     Route: 048
     Dates: start: 20211023, end: 20211118

REACTIONS (8)
  - Peripheral swelling [None]
  - Erythema [None]
  - Gout [None]
  - Impaired work ability [None]
  - Pain in extremity [None]
  - Haemoglobin decreased [None]
  - Platelet count decreased [None]
  - Therapy interrupted [None]

NARRATIVE: CASE EVENT DATE: 20211115
